FAERS Safety Report 7078305-8 (Version None)
Quarter: 2010Q4

REPORT INFORMATION
  Report Type: 
  Country: None (occurrence: None)
  Receive Date: 20101102
  Receipt Date: 20101020
  Transmission Date: 20110411
  Serious: Yes (Hospitalization)
  Sender: FDA-Public Use
  Company Number: US-ELI_LILLY_AND_COMPANY-US201010005578

PATIENT
  Sex: Female

DRUGS (12)
  1. FORTEO [Suspect]
     Indication: OSTEOPOROSIS
     Dosage: 20 UG, DAILY (1/D)
     Route: 058
     Dates: start: 20100926
  2. ZETIA [Concomitant]
     Dosage: 10 MG, DAILY
  3. NIASPAN [Concomitant]
     Dosage: 1000 MG, EACH EVENING
  4. PLAVIX [Concomitant]
     Dosage: 75 MG, QOD
  5. PROPRANOLOL [Concomitant]
     Dosage: 10 MG, DAILY (1/D)
  6. PROTONIX [Concomitant]
     Dosage: 40 MG, DAILY (1/D)
  7. HYDROCHLOROTHIAZIDE [Concomitant]
     Dosage: 12 MG, DAILY (1/D)
  8. TRAMADOL [Concomitant]
     Dosage: 100 MG, 2/D
  9. CALCIUM WITH VITAMIN D [Concomitant]
     Dosage: 600 MG, 2/D
  10. CENTRUM SILVER [Concomitant]
     Dosage: UNK, DAILY (1/D)
  11. ASPIRIN [Concomitant]
     Dosage: UNK, DAILY (1/D)
  12. STOOL SOFTENER [Concomitant]
     Dosage: UNK, DAILY (1/D)

REACTIONS (3)
  - ASTHENIA [None]
  - PAIN [None]
  - SHOULDER ARTHROPLASTY [None]
